FAERS Safety Report 19067447 (Version 1)
Quarter: 2021Q1

REPORT INFORMATION
  Report Type: Spontaneous
  Country: US (occurrence: US)
  Receive Date: 20210329
  Receipt Date: 20210329
  Transmission Date: 20210420
  Serious: No
  Sender: FDA-Public Use
  Company Number: US-BIOVITRUM-2021US0254

PATIENT
  Sex: Male

DRUGS (7)
  1. SYNAGIS [Suspect]
     Active Substance: PALIVIZUMAB
     Indication: RESPIRATORY SYNCYTIAL VIRUS INFECTION
     Route: 030
     Dates: start: 20201106
  2. ROBINUL [Concomitant]
     Active Substance: GLYCOPYRROLATE
  3. CUVPOSA [Concomitant]
     Active Substance: GLYCOPYRROLATE
  4. FAMOTIDINE. [Concomitant]
     Active Substance: FAMOTIDINE
  5. CLONIDINE. [Concomitant]
     Active Substance: CLONIDINE
  6. ALBUTEROL. [Concomitant]
     Active Substance: ALBUTEROL
  7. POLY?VI?SOL/IRON [Concomitant]

REACTIONS (3)
  - Insomnia [Unknown]
  - Inappropriate schedule of product administration [Unknown]
  - Product dose omission issue [Unknown]
